FAERS Safety Report 8813548 (Version 1)
Quarter: 2012Q4

REPORT INFORMATION
  Report Type: 
  Country: US (occurrence: US)
  Receive Date: 20120927
  Receipt Date: 20120927
  Transmission Date: 20130627
  Serious: No
  Sender: FDA-Public Use
  Company Number: US-AMGEN-USASP2012051959

PATIENT
  Age: 70 Year
  Sex: Female
  Weight: 65.31 kg

DRUGS (3)
  1. PROLIA [Suspect]
     Indication: OSTEOPOROSIS POSTMENOPAUSAL
     Dosage: 60 mg, q6mo
     Dates: start: 20120801, end: 20120814
  2. CALCIUM [Concomitant]
     Dosage: UNK
  3. VITAMIN D /00107901/ [Concomitant]
     Dosage: UNK

REACTIONS (6)
  - Influenza like illness [Unknown]
  - Pain [Unknown]
  - Confusional state [Unknown]
  - Dizziness [Unknown]
  - Coordination abnormal [Unknown]
  - Muscle spasms [Unknown]
